FAERS Safety Report 24344924 (Version 1)
Quarter: 2024Q3

REPORT INFORMATION
  Report Type: Spontaneous
  Country: JP (occurrence: JP)
  Receive Date: 20240920
  Receipt Date: 20240920
  Transmission Date: 20241016
  Serious: Yes (Other)
  Sender: OTSUKA
  Company Number: JP-OTSUKA-2023_023474

PATIENT
  Age: 36 Year
  Sex: Female

DRUGS (2)
  1. REXULTI [Suspect]
     Active Substance: BREXPIPRAZOLE
     Indication: Product used for unknown indication
     Dosage: 0.5/DAY
     Route: 048
     Dates: start: 20230804, end: 20230807
  2. RISPERIDONE [Suspect]
     Active Substance: RISPERIDONE
     Indication: Product used for unknown indication
     Dosage: UNK
     Route: 048

REACTIONS (20)
  - Hyperprolactinaemia [Unknown]
  - Suicidal ideation [Unknown]
  - Suicide attempt [Unknown]
  - Emotional distress [Unknown]
  - Abnormal behaviour [Recovered/Resolved]
  - Euphoric mood [Recovered/Resolved]
  - Memory impairment [Unknown]
  - General physical health deterioration [Unknown]
  - Stress [Unknown]
  - Decreased appetite [Unknown]
  - Gait disturbance [Unknown]
  - Vertigo [Unknown]
  - Headache [Unknown]
  - Nausea [Recovered/Resolved]
  - Anxiety [Unknown]
  - Dizziness postural [Recovered/Resolved]
  - Tremor [Unknown]
  - Dizziness [Unknown]
  - Product use in unapproved indication [Unknown]
  - Therapy cessation [Unknown]

NARRATIVE: CASE EVENT DATE: 20230801
